FAERS Safety Report 8388161-3 (Version None)
Quarter: 2012Q2

REPORT INFORMATION
  Report Type: 
  Country: None (occurrence: None)
  Receive Date: 20120525
  Receipt Date: 20120517
  Transmission Date: 20120825
  Serious: Yes (Hospitalization)
  Sender: FDA-Public Use
  Company Number: US-US-EMD SERONO, INC.-7134152

PATIENT
  Sex: Female
  Weight: 10 kg

DRUGS (10)
  1. DIAZOXIDE [Concomitant]
     Dates: start: 20120201
  2. CAPTOPRIL [Concomitant]
     Indication: PRODUCT USED FOR UNKNOWN INDICATION
  3. LASIX [Concomitant]
     Indication: PRODUCT USED FOR UNKNOWN INDICATION
  4. GAS DROPS [Concomitant]
     Indication: PRODUCT USED FOR UNKNOWN INDICATION
  5. SAIZEN [Suspect]
     Indication: GROWTH HORMONE DEFICIENCY
     Dates: end: 20120201
  6. SAIZEN [Suspect]
     Dates: start: 20120201
  7. ASPIRIN [Concomitant]
     Indication: PRODUCT USED FOR UNKNOWN INDICATION
  8. DIGOXIN [Concomitant]
     Indication: PRODUCT USED FOR UNKNOWN INDICATION
  9. DIAZOXIDE [Concomitant]
     Indication: PRODUCT USED FOR UNKNOWN INDICATION
     Dates: end: 20120201
  10. MULTIVITAMIN WITH IRON [Concomitant]
     Indication: PRODUCT USED FOR UNKNOWN INDICATION

REACTIONS (2)
  - HYPOGLYCAEMIA [None]
  - PNEUMONIA [None]
